FAERS Safety Report 9682669 (Version 1)
Quarter: 2013Q4

REPORT INFORMATION
  Report Type: Spontaneous
  Country: DE (occurrence: DE)
  Receive Date: 20131019
  Receipt Date: 20131019
  Transmission Date: 20140711
  Serious: Yes (Death)
  Sender: FDA-Public Use
  Company Number: DE-DRREDDYS-GER/GER/13/0034940

PATIENT
  Age: 36 Year
  Sex: Male
  Weight: 130 kg

DRUGS (1)
  1. OLANZAPINE [Suspect]
     Indication: SCHIZOPHRENIA
     Dosage: 2X10MG
     Dates: start: 200703

REACTIONS (1)
  - Death [Fatal]
